FAERS Safety Report 6286931-9 (Version None)
Quarter: 2009Q3

REPORT INFORMATION
  Report Type: 
  Country: None (occurrence: None)
  Receive Date: 20090724
  Receipt Date: 20090709
  Transmission Date: 20100115
  Serious: Yes (Hospitalization, Other)
  Sender: FDA-Public Use
  Company Number: ADE2009-0732

PATIENT
  Age: 51 Year
  Sex: Male

DRUGS (6)
  1. METFORMIN [Suspect]
     Dosage: 850MG, DAILY
  2. REPAGLINIDE [Suspect]
  3. AMLODIPINE [Concomitant]
  4. ASPIRIN [Concomitant]
  5. INSULIN [Concomitant]
  6. VITAMIN TAB [Concomitant]

REACTIONS (8)
  - ASTERIXIS [None]
  - DYSARTHRIA [None]
  - GAIT DISTURBANCE [None]
  - HAEMODIALYSIS [None]
  - HEMIPARESIS [None]
  - MYOCLONUS [None]
  - TOXIC ENCEPHALOPATHY [None]
  - TRISMUS [None]
